FAERS Safety Report 7529143-0 (Version None)
Quarter: 2011Q2

REPORT INFORMATION
  Report Type: 
  Country: None (occurrence: None)
  Receive Date: 20110607
  Receipt Date: 20050331
  Transmission Date: 20111010
  Serious: Yes (Other)
  Sender: FDA-Public Use
  Company Number: PHHO2005CA05445

PATIENT
  Sex: Female

DRUGS (3)
  1. CLOZARIL [Suspect]
     Dosage: 150 MG, UNK
     Route: 048
     Dates: start: 20010219
  2. FERROUS GLUCONATE [Concomitant]
     Dosage: UNK
  3. ZOLOFT [Concomitant]
     Dosage: UNK

REACTIONS (3)
  - INFECTIOUS MONONUCLEOSIS [None]
  - NEUTROPENIA [None]
  - UPPER RESPIRATORY TRACT INFECTION [None]
